FAERS Safety Report 22660589 (Version 14)
Quarter: 2025Q3

REPORT INFORMATION
  Report Type: Spontaneous
  Country: AU (occurrence: AU)
  Receive Date: 20230630
  Receipt Date: 20250812
  Transmission Date: 20251021
  Serious: Yes (Other)
  Sender: VERTEX
  Company Number: US-VERTEX PHARMACEUTICALS-2023-009359

PATIENT
  Age: 30 Year
  Sex: Male

DRUGS (2)
  1. TRIKAFTA [Suspect]
     Active Substance: ELEXACAFTOR\IVACAFTOR\TEZACAFTOR
     Indication: Cystic fibrosis
     Route: 048
  2. CREON [Concomitant]
     Active Substance: PANCRELIPASE AMYLASE\PANCRELIPASE LIPASE\PANCRELIPASE PROTEASE

REACTIONS (36)
  - Illness [Recovered/Resolved]
  - Weight increased [Recovering/Resolving]
  - Suicidal ideation [Unknown]
  - Emotional poverty [Recovering/Resolving]
  - Psychiatric symptom [Recovering/Resolving]
  - Alopecia [Unknown]
  - Parainfluenzae virus infection [Not Recovered/Not Resolved]
  - Vomiting [Unknown]
  - Attention deficit hyperactivity disorder [Unknown]
  - Memory impairment [Not Recovered/Not Resolved]
  - Hair colour changes [Unknown]
  - Alopecia [Unknown]
  - Cough [Recovering/Resolving]
  - Constipation [Unknown]
  - Disturbance in social behaviour [Unknown]
  - Dyspnoea exertional [Unknown]
  - Arthralgia [Unknown]
  - Myalgia [Unknown]
  - Fatigue [Unknown]
  - Malnutrition [Unknown]
  - Respiratory tract irritation [Unknown]
  - Abnormal faeces [Unknown]
  - Anhedonia [Unknown]
  - Brain fog [Not Recovered/Not Resolved]
  - Eating disorder [Unknown]
  - Disturbance in attention [Unknown]
  - Negative thoughts [Unknown]
  - Mental disorder [Unknown]
  - Poor quality sleep [Recovering/Resolving]
  - Anxiety [Not Recovered/Not Resolved]
  - Gastrointestinal disorder [Not Recovered/Not Resolved]
  - Initial insomnia [Recovering/Resolving]
  - Disturbance in social behaviour [Unknown]
  - Depression [Unknown]
  - Influenza [Not Recovered/Not Resolved]
  - Abdominal pain upper [Unknown]
